FAERS Safety Report 22270637 (Version 1)
Quarter: 2023Q2

REPORT INFORMATION
  Report Type: Spontaneous
  Country: CA (occurrence: CA)
  Receive Date: 20230501
  Receipt Date: 20230501
  Transmission Date: 20230721
  Serious: Yes (Other)
  Sender: FDA-Public Use
  Company Number: CA-NOVOPROD-1056783

PATIENT
  Age: 51 Year
  Sex: Female
  Weight: 106 kg

DRUGS (15)
  1. OZEMPIC [Suspect]
     Active Substance: SEMAGLUTIDE
     Indication: Product used for unknown indication
     Dosage: UNK
  2. DICLOFENAC [Concomitant]
     Active Substance: DICLOFENAC
     Dosage: 1 DF
  3. FOLIC ACID [Concomitant]
     Active Substance: FOLIC ACID
     Dosage: 1 DF
  4. METHOTREXATE [Concomitant]
     Active Substance: METHOTREXATE
     Dosage: 25MG
     Route: 042
     Dates: start: 20180822
  5. SULFASALAZINE [Concomitant]
     Active Substance: SULFASALAZINE
     Dosage: 1 G, BID
     Dates: start: 20200807
  6. CHOLECALCIFEROL [Concomitant]
     Active Substance: CHOLECALCIFEROL
     Dosage: UNK
  7. INFLIXIMAB [Suspect]
     Active Substance: INFLIXIMAB
     Dosage: 540MG SUPPOSED TO RECEIVED 547MG EVERY 6 WEEKS
     Route: 042
     Dates: start: 20221201
  8. INFLIXIMAB [Suspect]
     Active Substance: INFLIXIMAB
     Dosage: 5MG/KG EVERY 6 WEEKS
     Route: 042
     Dates: start: 20230112
  9. INFLIXIMAB [Suspect]
     Active Substance: INFLIXIMAB
     Dosage: 530MG SUPPOSED TO RECEIVED 547MG EVERY 6 WEEKS
     Route: 042
     Dates: start: 20220908
  10. INFLIXIMAB [Suspect]
     Active Substance: INFLIXIMAB
     Dosage: 530MG SUPPOSED TO RECEIVED 547MG EVERY 6 WEEKS
     Route: 042
     Dates: start: 20220728
  11. INFLIXIMAB [Suspect]
     Active Substance: INFLIXIMAB
     Dosage: 547MG, EVERY 6 WEEK
     Route: 042
     Dates: start: 20220413
  12. INFLIXIMAB [Suspect]
     Active Substance: INFLIXIMAB
     Dosage: 5MG/KG AT 0,2,6 THEN EVERY 8 WEEKS
     Route: 042
     Dates: start: 20220301
  13. INFLIXIMAB [Suspect]
     Active Substance: INFLIXIMAB
     Dosage: 5MG/KG EVERY 6 WEEKS
     Route: 042
     Dates: start: 20230222
  14. INFLIXIMAB [Suspect]
     Active Substance: INFLIXIMAB
     Indication: Psoriatic arthropathy
     Dosage: 5 MG/KG AT 0,2,6 THEN EVERY 8 WEEKS
     Route: 042
     Dates: start: 20211125
  15. INFLIXIMAB [Suspect]
     Active Substance: INFLIXIMAB
     Dosage: 5MG/KG AT 0,2,6 THEN EVERY 8 WEEKS
     Route: 042
     Dates: start: 20220104

REACTIONS (10)
  - Weight decreased [Unknown]
  - Therapeutic product effect incomplete [Unknown]
  - Off label use [Unknown]
  - Pain [Not Recovered/Not Resolved]
  - COVID-19 [Not Recovered/Not Resolved]
  - Nasopharyngitis [Not Recovered/Not Resolved]
  - Bone pain [Not Recovered/Not Resolved]
  - Weight increased [Unknown]
  - Blood pressure fluctuation [Not Recovered/Not Resolved]
  - Inappropriate schedule of product administration [Unknown]

NARRATIVE: CASE EVENT DATE: 20220101
